FAERS Safety Report 6243055-4 (Version None)
Quarter: 2009Q2

REPORT INFORMATION
  Report Type: 
  Country: None (occurrence: None)
  Receive Date: 20090624
  Receipt Date: 20090612
  Transmission Date: 20091009
  Serious: Yes (Other)
  Sender: FDA-Public Use
  Company Number: GR-ELI_LILLY_AND_COMPANY-GR200906003025

PATIENT
  Age: 78 Year
  Sex: Female

DRUGS (6)
  1. CYMBALTA [Suspect]
     Indication: DIABETIC NEUROPATHY
     Dosage: 30 MG, DAILY (1/D)
     Route: 048
     Dates: start: 20090318
  2. CYMBALTA [Suspect]
     Dosage: 60 MG, DAILY (1/D)
     Route: 048
     Dates: start: 20090402, end: 20090519
  3. SOLOSA [Concomitant]
     Indication: DIABETES MELLITUS
     Dosage: 3 MG, 3/D
     Route: 048
     Dates: start: 20090201
  4. ZANTAC [Concomitant]
     Indication: PROPHYLAXIS AGAINST GASTROINTESTINAL ULCER
     Dosage: 150 MG, DAILY (1/D)
     Route: 048
     Dates: start: 20090201
  5. CILROTON [Concomitant]
     Indication: PROPHYLAXIS AGAINST GASTROINTESTINAL ULCER
     Dosage: 10 MG, DAILY (1/D)
     Route: 048
     Dates: start: 20090201
  6. MAGNESIUM SULFATE [Concomitant]
     Indication: PROPHYLAXIS AGAINST GASTROINTESTINAL ULCER
     Dosage: 5 ML, DAILY (1/D)
     Route: 048
     Dates: start: 20090201

REACTIONS (4)
  - CHROMATURIA [None]
  - HEADACHE [None]
  - VARICOSE VEIN [None]
  - VASCULITIS [None]
